FAERS Safety Report 6347459-0 (Version None)
Quarter: 2009Q3

REPORT INFORMATION
  Report Type: 
  Country: None (occurrence: None)
  Receive Date: 20090910
  Receipt Date: 20090908
  Transmission Date: 20100115
  Serious: Yes (Other)
  Sender: FDA-Public Use
  Company Number: JP-B.I. PHARMACEUTICALS,INC./RIDGEFIELD-2009-BP-09289NB

PATIENT

DRUGS (7)
  1. MICARDIS [Suspect]
     Dosage: 40 MG
     Route: 048
  2. LIPITOR [Suspect]
     Dosage: 10 MG
     Route: 048
  3. COMELIAN [Concomitant]
     Route: 065
  4. URSO 250 [Concomitant]
     Route: 065
  5. ALLOPURINOL [Concomitant]
     Route: 065
  6. RHYTHMY [Concomitant]
     Route: 065
  7. RIZE [Concomitant]
     Route: 065

REACTIONS (1)
  - INTERSTITIAL LUNG DISEASE [None]
